FAERS Safety Report 4382711-X (Version None)
Quarter: 2004Q2

REPORT INFORMATION
  Report Type: 
  Country: None (occurrence: None)
  Receive Date: 20040614
  Receipt Date: 20040427
  Transmission Date: 20050107
  Serious: Yes (Death)
  Sender: FDA-Public Use
  Company Number: S04-USA-02676-01

PATIENT
  Age: 25 Year
  Sex: Female

DRUGS (5)
  1. LEXAPRO [Suspect]
  2. BENADRYL [Concomitant]
  3. SKELAXIN [Concomitant]
  4. AMBIEN [Concomitant]
  5. RITALIN [Concomitant]

REACTIONS (1)
  - DEATH [None]
